FAERS Safety Report 15681977 (Version 4)
Quarter: 2018Q4

REPORT INFORMATION
  Report Type: Spontaneous
  Country: JP (occurrence: JP)
  Receive Date: 20181203
  Receipt Date: 20181217
  Transmission Date: 20190205
  Serious: Yes (Other)
  Sender: FDA-Public Use
  Company Number: JP-PFIZER INC-2018493082

PATIENT
  Age: 60 Year
  Sex: Female

DRUGS (7)
  1. LEUCOVORIN. [Suspect]
     Active Substance: LEUCOVORIN
     Indication: ADJUVANT THERAPY
  2. OXALIPLATIN. [Suspect]
     Active Substance: OXALIPLATIN
     Indication: COLON CANCER STAGE III
  3. FLUOROURACIL. [Suspect]
     Active Substance: FLUOROURACIL
     Indication: ADJUVANT THERAPY
     Dosage: 2400 MG/M2, CYCLIC (2400 MG/M2/46 HREVERY 2 WEEKS WAS STARTED AT A 90% DOSAGE)
  4. OXALIPLATIN. [Suspect]
     Active Substance: OXALIPLATIN
     Indication: ADJUVANT THERAPY
     Dosage: 85 MG/M2, CYCLIC (85 MG/M2/2 HR)
  5. FLUOROURACIL. [Suspect]
     Active Substance: FLUOROURACIL
     Indication: COLON CANCER STAGE III
     Dosage: 400 MG/M2, CYCLIC
     Route: 040
  6. DEXAMETHASONE. [Concomitant]
     Active Substance: DEXAMETHASONE
     Indication: ANTIEMETIC SUPPORTIVE CARE
     Dosage: 9.9 MG, UNK (INJECTION)
  7. LEUCOVORIN. [Suspect]
     Active Substance: LEUCOVORIN
     Indication: COLON CANCER STAGE III
     Dosage: 200 MG/M2, CYCLIC

REACTIONS (1)
  - Hyperammonaemic encephalopathy [Not Recovered/Not Resolved]
